FAERS Safety Report 16235591 (Version 2)
Quarter: 2019Q2

REPORT INFORMATION
  Report Type: Spontaneous
  Country: CN (occurrence: CN)
  Receive Date: 20190424
  Receipt Date: 20190626
  Transmission Date: 20190711
  Serious: Yes (Hospitalization)
  Sender: FDA-Public Use
  Company Number: CN-SUN PHARMACEUTICAL INDUSTRIES LTD-2019R1-201673

PATIENT
  Age: 77 Year
  Sex: Male

DRUGS (7)
  1. CEFDINIR. [Suspect]
     Active Substance: CEFDINIR
     Indication: GASTROINTESTINAL INFECTION
     Dosage: 0.1 GRAM, BID
     Route: 048
  2. CEFEPIME [Suspect]
     Active Substance: CEFEPIME HYDROCHLORIDE
     Indication: GASTROINTESTINAL INFECTION
     Dosage: 1 GRAM, BID
     Route: 042
  3. OMEPRAZOLE. [Suspect]
     Active Substance: OMEPRAZOLE
     Indication: ABDOMINAL DISCOMFORT
     Dosage: UNK
     Route: 048
  4. PANTOPRAZOLE [Suspect]
     Active Substance: PANTOPRAZOLE
     Indication: ABDOMINAL DISCOMFORT
     Dosage: INTRAVENOUS DROP INFUSION
     Route: 042
  5. CEFDINIR. [Suspect]
     Active Substance: CEFDINIR
     Dosage: AFTER DISCHARGE, HE CONTINUED ANTIBACTERIAL TREATMENT
     Route: 048
  6. CLOSTRIDIUM BUTYRICUM [Suspect]
     Active Substance: CLOSTRIDIUM BUTYRICUM SPORES STRAIN M-55
     Indication: GASTROINTESTINAL BACTERIAL OVERGROWTH
     Dosage: UNK
     Route: 065
  7. DICLOFENAC [Suspect]
     Active Substance: DICLOFENAC
     Indication: PAIN
     Dosage: UNK
     Route: 048

REACTIONS (2)
  - Clostridium difficile colitis [Recovered/Resolved]
  - Clostridium difficile infection [Recovered/Resolved]
